FAERS Safety Report 8922854 (Version 1)
Quarter: 2012Q4

REPORT INFORMATION
  Report Type: Spontaneous
  Country: IT (occurrence: None)
  Receive Date: 20121109
  Receipt Date: 20121109
  Transmission Date: 20130627
  Serious: Yes (Hospitalization)
  Sender: FDA-Public Use
  Company Number: 2012S1000082

PATIENT
  Age: 86 Year
  Sex: Female

DRUGS (6)
  1. CUBICIN [Suspect]
     Dates: start: 20111215, end: 20120108
  2. BISOPROLOL [Concomitant]
  3. FUMARATE [Concomitant]
  4. COTAREG [Concomitant]
  5. OMEPRAZOLE [Concomitant]
  6. GABAPENTIN [Concomitant]

REACTIONS (2)
  - Eosinophilia [None]
  - Pneumonia [None]
